FAERS Safety Report 22396776 (Version 1)
Quarter: 2023Q2

REPORT INFORMATION
  Report Type: Spontaneous
  Country: US (occurrence: US)
  Receive Date: 20230601
  Receipt Date: 20230601
  Transmission Date: 20230721
  Serious: No
  Sender: FDA-Public Use
  Company Number: US-BAUSCHBL-2023BNL004677

PATIENT
  Age: 69 Year
  Sex: Female

DRUGS (3)
  1. PROLENSA [Suspect]
     Active Substance: BROMFENAC SODIUM
     Indication: Postoperative care
     Route: 047
     Dates: start: 20230526
  2. BESIVANCE [Concomitant]
     Active Substance: BESIFLOXACIN
     Indication: Product used for unknown indication
  3. LOTEMAX SM [Concomitant]
     Active Substance: LOTEPREDNOL ETABONATE
     Indication: Product used for unknown indication

REACTIONS (2)
  - Instillation site irritation [Unknown]
  - Instillation site foreign body sensation [Unknown]

NARRATIVE: CASE EVENT DATE: 20230530
